FAERS Safety Report 23886721 (Version 3)
Quarter: 2024Q4

REPORT INFORMATION
  Report Type: Spontaneous
  Country: US (occurrence: US)
  Receive Date: 20240522
  Receipt Date: 20241009
  Transmission Date: 20250115
  Serious: Yes (Death, Hospitalization, Other)
  Sender: NOVARTIS
  Company Number: US-002147023-NVSC2024US108140

PATIENT
  Age: 2 Year
  Sex: Male

DRUGS (7)
  1. PROMACTA [Suspect]
     Active Substance: ELTROMBOPAG OLAMINE
     Indication: Immune thrombocytopenia
     Dosage: 25 MG
     Route: 048
     Dates: start: 20240117
  2. PROMACTA [Suspect]
     Active Substance: ELTROMBOPAG OLAMINE
     Dosage: 50 MG, QD
     Route: 048
     Dates: start: 202401
  3. PROMACTA [Suspect]
     Active Substance: ELTROMBOPAG OLAMINE
     Dosage: 37.5 MG
     Route: 048
  4. PROMACTA [Suspect]
     Active Substance: ELTROMBOPAG OLAMINE
     Dosage: 50 MG
     Route: 048
     Dates: end: 20240509
  5. GAMUNEX-C [Concomitant]
     Active Substance: HUMAN IMMUNOGLOBULIN G
     Indication: Product used for unknown indication
     Dosage: UNK (5 GM/50 ML)
     Route: 065
  6. AMMONUL [Concomitant]
     Active Substance: SODIUM BENZOATE\SODIUM PHENYLACETATE
     Indication: Product used for unknown indication
     Dosage: UNK
     Route: 065
  7. ARGININE [Concomitant]
     Active Substance: ARGININE
     Indication: Hyperammonaemia
     Dosage: UNK
     Route: 065

REACTIONS (22)
  - Hepatic failure [Fatal]
  - Platelet count increased [Fatal]
  - Viral infection [Fatal]
  - Hepatic function abnormal [Fatal]
  - Diarrhoea [Fatal]
  - Reye^s syndrome [Unknown]
  - Pulmonary oedema [Unknown]
  - Brain oedema [Unknown]
  - Pulmonary congestion [Unknown]
  - Thrombosis [Unknown]
  - Mental status changes [Unknown]
  - Rhinovirus infection [Unknown]
  - Nasal congestion [Unknown]
  - Vomiting [Unknown]
  - Neurological procedural complication [Unknown]
  - Prothrombin time prolonged [Unknown]
  - Hepatic steatosis [Unknown]
  - Hyperammonaemia [Unknown]
  - Cell death [Unknown]
  - Blister [Unknown]
  - Erythema [Unknown]
  - Macrocephaly [Unknown]

NARRATIVE: CASE EVENT DATE: 20240512
